FAERS Safety Report 7248297-7 (Version None)
Quarter: 2011Q1

REPORT INFORMATION
  Report Type: 
  Country: None (occurrence: None)
  Receive Date: 20110127
  Receipt Date: 20101216
  Transmission Date: 20110831
  Serious: Yes (Death, Other)
  Sender: FDA-Public Use
  Company Number: US-BAXTER-2010BH017501

PATIENT
  Age: 69 Year
  Sex: Female

DRUGS (23)
  1. HEPARIN SODIUM 5,000 UNITS IN DEXTROSE 5% [Suspect]
     Indication: ANTICOAGULANT THERAPY
     Route: 042
     Dates: start: 20080624, end: 20080627
  2. HEPARIN SODIUM 5,000 UNITS IN DEXTROSE 5% [Suspect]
     Route: 042
     Dates: start: 20080616, end: 20080623
  3. HEPARIN SODIUM 5,000 UNITS IN DEXTROSE 5% [Suspect]
     Indication: CATHETERISATION CARDIAC
     Route: 042
     Dates: start: 20080624, end: 20080627
  4. NOVOLIN 70/30 [Concomitant]
     Indication: PRODUCT USED FOR UNKNOWN INDICATION
     Route: 065
  5. HEPARIN SODIUM INJECTION [Suspect]
     Route: 040
     Dates: start: 20080625, end: 20080625
  6. HEPARIN SODIUM INJECTION [Suspect]
     Indication: ANTICOAGULANT THERAPY
     Route: 040
     Dates: start: 20080616, end: 20080623
  7. HEPARIN SODIUM INJECTION [Suspect]
     Route: 042
     Dates: start: 20080624, end: 20080627
  8. HEPARIN SODIUM INJECTION [Suspect]
     Route: 040
     Dates: start: 20080624, end: 20080624
  9. SYNTHROID [Concomitant]
     Indication: PRODUCT USED FOR UNKNOWN INDICATION
     Route: 065
  10. HEPARIN SODIUM INJECTION [Suspect]
     Route: 040
     Dates: start: 20080621, end: 20080621
  11. HEPARIN SODIUM INJECTION [Suspect]
     Route: 040
     Dates: start: 20080624, end: 20080624
  12. ATENOLOL [Concomitant]
     Indication: PRODUCT USED FOR UNKNOWN INDICATION
     Route: 065
  13. HEPARIN SODIUM INJECTION [Suspect]
     Route: 042
     Dates: start: 20080624, end: 20080627
  14. HEPARIN SODIUM 5,000 UNITS IN DEXTROSE 5% [Suspect]
     Route: 042
     Dates: start: 20080616, end: 20080623
  15. ASA [Concomitant]
     Indication: PRODUCT USED FOR UNKNOWN INDICATION
     Route: 065
  16. LIPITOR [Concomitant]
     Indication: PRODUCT USED FOR UNKNOWN INDICATION
     Route: 065
  17. FERREX [Concomitant]
     Indication: PRODUCT USED FOR UNKNOWN INDICATION
     Route: 065
  18. HEPARIN SODIUM INJECTION [Suspect]
     Route: 040
     Dates: start: 20080618, end: 20080618
  19. HEPARIN SODIUM INJECTION [Suspect]
     Indication: CATHETERISATION CARDIAC
     Route: 040
     Dates: start: 20080616, end: 20080623
  20. HEPARIN SODIUM INJECTION [Suspect]
     Route: 040
     Dates: start: 20080618, end: 20080618
  21. HEPARIN SODIUM INJECTION [Suspect]
     Route: 040
     Dates: start: 20080621, end: 20080621
  22. HEPARIN SODIUM INJECTION [Suspect]
     Route: 040
     Dates: start: 20080625, end: 20080625
  23. NEXIUM [Concomitant]
     Indication: PRODUCT USED FOR UNKNOWN INDICATION
     Route: 065

REACTIONS (5)
  - RETROPERITONEAL HAEMORRHAGE [None]
  - CHEST PAIN [None]
  - ABDOMINAL DISCOMFORT [None]
  - DYSPNOEA [None]
  - HYPOTENSION [None]
